FAERS Safety Report 18618907 (Version 1)
Quarter: 2020Q4

REPORT INFORMATION
  Report Type: Spontaneous
  Country: US (occurrence: US)
  Receive Date: 20201215
  Receipt Date: 20201215
  Transmission Date: 20210114
  Serious: No
  Sender: FDA-Public Use
  Company Number: US-SUPERNUS PHARMACEUTICALS, INC.-2020SUP00039

PATIENT
  Age: 63 Year
  Sex: Male
  Weight: 93.88 kg

DRUGS (2)
  1. OXTELLAR XR [Suspect]
     Active Substance: OXCARBAZEPINE
     Dosage: 1 TABLETS, 1X/DAY
     Route: 048
     Dates: start: 202002
  2. OXTELLAR XR [Suspect]
     Active Substance: OXCARBAZEPINE
     Indication: SEIZURE
     Dosage: 2 TABLETS, 1X/DAY
     Route: 048
     Dates: start: 201910, end: 202002

REACTIONS (4)
  - Joint stiffness [Not Recovered/Not Resolved]
  - Arthralgia [Not Recovered/Not Resolved]
  - Neck pain [Not Recovered/Not Resolved]
  - Arthritis [Not Recovered/Not Resolved]

NARRATIVE: CASE EVENT DATE: 201910
